FAERS Safety Report 8152930-5 (Version None)
Quarter: 2012Q1

REPORT INFORMATION
  Report Type: 
  Country: None (occurrence: None)
  Receive Date: 20120221
  Receipt Date: 20120213
  Transmission Date: 20120608
  Serious: Yes (Death, Hospitalization)
  Sender: FDA-Public Use
  Company Number: JP-EISAI INC-E7389-02067-CLI-JP

PATIENT
  Sex: Female
  Weight: 62 kg

DRUGS (11)
  1. ALDACTONE [Concomitant]
     Route: 048
  2. HALAVEN [Suspect]
     Indication: METASTASES TO LYMPH NODES
  3. LASIX [Concomitant]
     Route: 048
  4. LOPERAMIDE HCL [Concomitant]
     Route: 048
  5. ZOMETA [Concomitant]
     Indication: METASTASES TO BONE
     Route: 042
  6. HALAVEN [Suspect]
     Indication: METASTASES TO SKIN
  7. HALAVEN [Suspect]
     Indication: BREAST CANCER RECURRENT
     Route: 041
     Dates: start: 20111124, end: 20111124
  8. HALAVEN [Suspect]
     Indication: METASTASES TO BONE
  9. HALAVEN [Suspect]
     Indication: METASTASES TO LUNG
  10. HALAVEN [Suspect]
     Indication: METASTASES TO LIVER
  11. CEFAZOLIN SODIUM [Concomitant]
     Route: 048

REACTIONS (4)
  - LIVER DISORDER [None]
  - NEUTROPENIA [None]
  - NEOPLASM MALIGNANT [None]
  - LEUKOPENIA [None]
